FAERS Safety Report 5176027-1 (Version None)
Quarter: 2006Q4

REPORT INFORMATION
  Report Type: 
  Country: None (occurrence: None)
  Receive Date: 20061215
  Receipt Date: 20061206
  Transmission Date: 20070319
  Serious: Yes (Other)
  Sender: FDA-Public Use
  Company Number: JP-ROCHE-474482

PATIENT
  Age: 64 Year
  Sex: Male

DRUGS (5)
  1. ROCEPHIN [Suspect]
     Indication: PNEUMONIA
     Route: 041
     Dates: start: 20060413, end: 20060422
  2. CLARITHROMYCIN [Concomitant]
     Dosage: DOSE FORM REPORTED AS ORAL FORMULATION (NOT OTHERWISE SPECIFIED).
     Route: 048
  3. MUCOSOLVAN [Concomitant]
     Dosage: DOSE FORM REPORTED AS ORAL FORMULATION (NOT OTHERWISE SPECIFIED). DRUG REPORTED AS AMBROXOL HYDROCH+
     Route: 048
  4. MARZULENE [Concomitant]
     Dosage: DOSE FORM REPORTED AS ORAL FORMULATION (NOT OTHERWISE SPECIFIED). DRUG REPORTED AS AZULENE SULFONAT+
     Route: 048
  5. BRUFEN [Concomitant]
     Dosage: DOSE FORM REPORTED AS ORAL FORMULATION (NOT OTHERWISE SPECIFIED).
     Route: 048

REACTIONS (1)
  - BLOOD POTASSIUM INCREASED [None]
